FAERS Safety Report 7559735-4 (Version None)
Quarter: 2011Q2

REPORT INFORMATION
  Report Type: 
  Country: None (occurrence: None)
  Receive Date: 20110606
  Receipt Date: 20110525
  Transmission Date: 20111010
  Serious: Yes (Other)
  Sender: FDA-Public Use
  Company Number: 2011PROUSA00336

PATIENT
  Age: 64 Year
  Sex: Male
  Weight: 127.4 kg

DRUGS (3)
  1. PROVENGE [Suspect]
     Indication: PROSTATE CANCER METASTATIC
     Dosage: 250 ML, SINGLE, INTRAVENOUS
     Route: 042
     Dates: start: 20110428, end: 20110428
  2. PROVENGE [Suspect]
     Indication: PROSTATE CANCER METASTATIC
     Dosage: 250 ML, SINGLE, INTRAVENOUS
     Route: 042
     Dates: start: 20110512, end: 20110512
  3. PROVENGE [Suspect]

REACTIONS (13)
  - PYREXIA [None]
  - ALANINE AMINOTRANSFERASE DECREASED [None]
  - NIGHT SWEATS [None]
  - DIZZINESS [None]
  - THROMBOPHLEBITIS SUPERFICIAL [None]
  - RESTLESSNESS [None]
  - RASH [None]
  - HALLUCINATION [None]
  - CHILLS [None]
  - BLOOD ALKALINE PHOSPHATASE INCREASED [None]
  - DEEP VEIN THROMBOSIS [None]
  - CELLULITIS [None]
  - FATIGUE [None]
